FAERS Safety Report 14702642 (Version 3)
Quarter: 2018Q4

REPORT INFORMATION
  Report Type: Spontaneous
  Country: US (occurrence: US)
  Receive Date: 20180402
  Receipt Date: 20181024
  Transmission Date: 20190204
  Serious: Yes (Hospitalization)
  Sender: FDA-Public Use
  Company Number: US-AMGEN-USASP2018042318

PATIENT
  Age: 72 Year
  Sex: Female
  Weight: 56 kg

DRUGS (10)
  1. ARANESP [Suspect]
     Active Substance: DARBEPOETIN ALFA
     Dosage: 80 MUG, QWK
     Route: 042
     Dates: start: 20171221, end: 20180208
  2. ARANESP [Suspect]
     Active Substance: DARBEPOETIN ALFA
     Dosage: 100 MUG, QWK
     Route: 042
     Dates: start: 20180208, end: 20180322
  3. ARANESP [Suspect]
     Active Substance: DARBEPOETIN ALFA
     Dosage: 125 MUG, QWK
     Route: 042
  4. LOSARTAN. [Concomitant]
     Active Substance: LOSARTAN
     Dosage: 25 MG, BID
     Route: 048
  5. ARANESP [Suspect]
     Active Substance: DARBEPOETIN ALFA
     Indication: END STAGE RENAL DISEASE
     Dosage: 25 MUG, QWK
     Route: 065
     Dates: start: 2017
  6. SERTRALINE [Concomitant]
     Active Substance: SERTRALINE HYDROCHLORIDE
     Dosage: 100 MG, QD
     Route: 048
  7. ARANESP [Suspect]
     Active Substance: DARBEPOETIN ALFA
     Dosage: 100 MUG, QWK
     Route: 065
  8. CARVEDILOL. [Concomitant]
     Active Substance: CARVEDILOL
     Dosage: 6.25 MG, BID
     Route: 048
  9. BUPROPION. [Concomitant]
     Active Substance: BUPROPION
     Dosage: 100 MG, QD
     Route: 048
  10. RENVELA [Concomitant]
     Active Substance: SEVELAMER CARBONATE
     Dosage: 2400 MG, TID
     Route: 048

REACTIONS (9)
  - Pleural effusion [Unknown]
  - Platelet count decreased [Unknown]
  - Productive cough [Unknown]
  - Anxiety [Unknown]
  - White blood cell count decreased [Unknown]
  - Anaemia [Not Recovered/Not Resolved]
  - Nausea [Unknown]
  - Refractory cytopenia with unilineage dysplasia [Not Recovered/Not Resolved]
  - Weight decreased [Unknown]

NARRATIVE: CASE EVENT DATE: 2018
